FAERS Safety Report 16424620 (Version 2)
Quarter: 2019Q2

REPORT INFORMATION
  Report Type: Spontaneous
  Country: JP (occurrence: JP)
  Receive Date: 20190613
  Receipt Date: 20190625
  Transmission Date: 20190711
  Serious: Yes (Death, Other)
  Sender: FDA-Public Use
  Company Number: JP-SAKK-2019SA158413AA

PATIENT
  Age: 43 Year
  Sex: Male
  Weight: 62 kg

DRUGS (1)
  1. FABRAZYME [Suspect]
     Active Substance: AGALSIDASE BETA
     Indication: FABRY^S DISEASE
     Dosage: DOSE: 60 MG QOW
     Route: 041
     Dates: start: 20131107

REACTIONS (3)
  - Disease progression [Fatal]
  - Cardiac dysfunction [Fatal]
  - Arrhythmia [Fatal]

NARRATIVE: CASE EVENT DATE: 20190609
